FAERS Safety Report 5157338-2 (Version None)
Quarter: 2006Q4

REPORT INFORMATION
  Report Type: 
  Country: None (occurrence: None)
  Receive Date: 20061116
  Receipt Date: 20061108
  Transmission Date: 20070319
  Serious: Yes (Other)
  Sender: FDA-Public Use
  Company Number: 2006137939

PATIENT
  Age: 88 Year
  Sex: Female
  Weight: 72.1219 kg

DRUGS (12)
  1. LIPITOR [Suspect]
     Indication: BLOOD CHOLESTEROL INCREASED
     Dosage: 10 MG (10 MG, 1 IN 1 D), ORAL
     Route: 048
     Dates: start: 20001101
  2. INDERAL [Concomitant]
  3. PLAVIX [Concomitant]
  4. ASPIRIN [Concomitant]
  5. CELEBREX [Concomitant]
  6. IBANDRONATE SODIUM (IBANDRONATE SODIUM) [Concomitant]
  7. ALTACE [Concomitant]
  8. IMDUR [Concomitant]
  9. MULTI-VITAMINS [Concomitant]
  10. CHONDROITIN (CHONDROITIN SULFATE) [Concomitant]
  11. CALCIUM (CALCIUM) [Concomitant]
  12. SYNTHROID [Concomitant]

REACTIONS (5)
  - ASTHENIA [None]
  - BUTTOCK PAIN [None]
  - GROIN PAIN [None]
  - NERVE COMPRESSION [None]
  - PAIN IN EXTREMITY [None]
